FAERS Safety Report 19053241 (Version 1)
Quarter: 2021Q1

REPORT INFORMATION
  Report Type: Spontaneous
  Country: CH (occurrence: CH)
  Receive Date: 20210325
  Receipt Date: 20210325
  Transmission Date: 20210420
  Serious: Yes (Other)
  Sender: FDA-Public Use
  Company Number: CH-BEH-2019104546

PATIENT
  Sex: Female

DRUGS (2)
  1. PRIVIGEN [Suspect]
     Active Substance: HUMAN IMMUNOGLOBULIN G
     Indication: NEUROPATHY PERIPHERAL
     Dosage: UNK
     Route: 042
  2. PRIVIGEN [Suspect]
     Active Substance: HUMAN IMMUNOGLOBULIN G
     Indication: DRUG THERAPY
     Dosage: UNK
     Route: 042
     Dates: start: 20190516, end: 20190516

REACTIONS (4)
  - Poor venous access [Unknown]
  - Off label use [Unknown]
  - Meningism [Unknown]
  - No adverse event [Unknown]
